FAERS Safety Report 5084753-8 (Version None)
Quarter: 2006Q3

REPORT INFORMATION
  Report Type: 
  Country: None (occurrence: None)
  Receive Date: 20060815
  Receipt Date: 20060803
  Transmission Date: 20061208
  Serious: Yes (Hospitalization)
  Sender: FDA-Public Use
  Company Number: FRP06000832

PATIENT
  Age: 63 Year
  Sex: Female

DRUGS (6)
  1. ACTONEL [Suspect]
     Indication: OSTEOPOROSIS
     Dosage: 35 MG, DAILY, ORAL
     Route: 048
     Dates: start: 20050201
  2. LASIX [Suspect]
     Indication: ARRHYTHMIA
     Dosage: 20 MG, DAILY, ORAL
     Route: 048
  3. OXAZEPAM [Suspect]
     Indication: DEPRESSION
     Dosage: 50 MG, DAILY, ORAL
     Route: 048
  4. SOTALOL HCL [Suspect]
     Indication: ARRHYTHMIA
     Dosage: 80 MG, 2/DAY, ORAL
     Route: 048
  5. ISRADIPINE [Suspect]
     Indication: ARRHYTHMIA
     Dosage: 5 MG, DAILY, ORAL
     Route: 048
  6. TRAMADOL HYDROCHLORIDE AND ACETAMINOPHEN [Suspect]
     Indication: SPINAL FRACTURE
     Dosage: 2 TABLET, 3 /DAY, ORAL
     Route: 048
     Dates: start: 20051108

REACTIONS (2)
  - CONVULSION [None]
  - HYPONATRAEMIA [None]
